FAERS Safety Report 13025063 (Version 1)
Quarter: 2016Q4

REPORT INFORMATION
  Report Type: Spontaneous
  Country: US (occurrence: US)
  Receive Date: 20161213
  Receipt Date: 20161213
  Transmission Date: 20170207
  Serious: No
  Sender: FDA-Public Use
  Company Number: US-AMGEN-USASP2016174759

PATIENT
  Age: 50 Year
  Sex: Female

DRUGS (3)
  1. TRIAMCINOLONE [Concomitant]
     Active Substance: TRIAMCINOLONE
     Indication: SKIN LESION
     Dosage: UNK
     Route: 026
  2. ETANERCEPT [Suspect]
     Active Substance: ETANERCEPT
     Indication: EOSINOPHILIC FASCIITIS
     Dosage: UNK
     Route: 065
  3. METHOTREXATE. [Concomitant]
     Active Substance: METHOTREXATE
     Indication: EOSINOPHILIC FASCIITIS
     Dosage: UNK

REACTIONS (1)
  - Off label use [Unknown]
